FAERS Safety Report 7215122-X (Version None)
Quarter: 2011Q1

REPORT INFORMATION
  Report Type: 
  Country: None (occurrence: None)
  Receive Date: 20110107
  Receipt Date: 20101020
  Transmission Date: 20110831
  Serious: No
  Sender: FDA-Public Use
  Company Number: A0878662A

PATIENT
  Age: 65 Year
  Sex: Male

DRUGS (8)
  1. VASOTEC [Concomitant]
  2. C-PAP MACHINE [Concomitant]
  3. LOVAZA [Suspect]
     Dosage: 2CAP TWICE PER DAY
     Route: 048
     Dates: end: 20100829
  4. TRILIPIX [Concomitant]
  5. XANAX [Concomitant]
  6. TRICOR [Concomitant]
  7. VITAMIN B-12 [Concomitant]
  8. ZOCOR [Concomitant]

REACTIONS (6)
  - DRUG INEFFECTIVE [None]
  - DECREASED APPETITE [None]
  - DRY MOUTH [None]
  - DYSGEUSIA [None]
  - NAUSEA [None]
  - FATIGUE [None]
